FAERS Safety Report 7920480-4 (Version None)
Quarter: 2011Q4

REPORT INFORMATION
  Report Type: 
  Country: None (occurrence: None)
  Receive Date: 20111117
  Receipt Date: 20111109
  Transmission Date: 20120403
  Serious: Yes (Other)
  Sender: FDA-Public Use
  Company Number: PHHY2011DK099856

PATIENT
  Age: 10 Year
  Sex: Male

DRUGS (1)
  1. RITALIN TAB [Suspect]
     Dosage: UNK UKN, UNK
     Dates: start: 20100101

REACTIONS (1)
  - EPILEPSY [None]
